FAERS Safety Report 9172862 (Version 4)
Quarter: 2013Q2

REPORT INFORMATION
  Report Type: Spontaneous
  Country: US (occurrence: US)
  Receive Date: 20130319
  Receipt Date: 20130606
  Transmission Date: 20140414
  Serious: Yes (Other)
  Sender: FDA-Public Use
  Company Number: US-JNJFOC-20130305120

PATIENT
  Sex: Female
  Weight: 50.35 kg

DRUGS (2)
  1. REMICADE [Suspect]
     Indication: COLITIS ULCERATIVE
     Dosage: 10 MG/KG
     Route: 042
     Dates: start: 200709
  2. PREDNISONE [Suspect]
     Indication: COLITIS ULCERATIVE
     Dosage: 40 MG TAPER
     Route: 048
     Dates: start: 1995

REACTIONS (1)
  - Osteoporosis [Unknown]
